FAERS Safety Report 19819891 (Version 1)
Quarter: 2021Q3

REPORT INFORMATION
  Report Type: Spontaneous
  Country: US (occurrence: US)
  Receive Date: 20210913
  Receipt Date: 20210913
  Transmission Date: 20211014
  Serious: No
  Sender: FDA-Public Use
  Company Number: US-ALLERGAN-2030918US

PATIENT
  Sex: Female

DRUGS (20)
  1. PANTOPRAZOLE [Concomitant]
     Active Substance: PANTOPRAZOLE
  2. MULTIVITAMINS [Concomitant]
     Active Substance: VITAMINS
  3. ESTRADIOL. [Concomitant]
     Active Substance: ESTRADIOL
  4. TYLENOL EXTRA STRENGTH [Concomitant]
     Active Substance: ACETAMINOPHEN
  5. ESTRONE W/PROGESTERONE [Concomitant]
  6. TESTOSTERONE. [Concomitant]
     Active Substance: TESTOSTERONE
  7. PROPRANOLOL [Concomitant]
     Active Substance: PROPRANOLOL HYDROCHLORIDE
  8. CELEXA [Suspect]
     Active Substance: CITALOPRAM HYDROBROMIDE
     Indication: PRODUCT USED FOR UNKNOWN INDICATION
     Dosage: 20 MG
     Route: 065
  9. LORAZEPAM. [Suspect]
     Active Substance: LORAZEPAM
     Indication: PRODUCT USED FOR UNKNOWN INDICATION
     Dosage: 0.5 MG, PRN
     Route: 065
  10. KETOPROFEN. [Concomitant]
     Active Substance: KETOPROFEN
  11. RIZATRIPTAN. [Concomitant]
     Active Substance: RIZATRIPTAN
  12. CEFALEXIN [Concomitant]
     Active Substance: CEPHALEXIN
  13. VITAMIN B COMPLEX [Concomitant]
     Active Substance: CYANOCOBALAMIN\DEXPANTHENOL\NIACINAMIDE\PYRIDOXINE HYDROCHLORIDE\RIBOFLAVIN 5^-PHOSPHATE SODIUM\THIAMINE HYDROCHLORIDE\VITAMIN B COMPLEX
  14. CAFFEINE. [Concomitant]
     Active Substance: CAFFEINE
  15. PROBIOTICS NOS [Concomitant]
     Active Substance: PROBIOTICS NOS
  16. LEVOTHYROXINE W/LIOTHYRONINE [Concomitant]
  17. HYDROCORTICONE [Concomitant]
     Active Substance: HYDROCORTISONE
  18. D?MANNOSE [Concomitant]
  19. MURO 128 [Concomitant]
     Active Substance: SODIUM CHLORIDE
  20. VITAMIN D [Concomitant]
     Active Substance: VITAMIN D NOS

REACTIONS (1)
  - Dizziness [Unknown]
